FAERS Safety Report 5407049-0 (Version None)
Quarter: 2007Q3

REPORT INFORMATION
  Report Type: 
  Country: None (occurrence: None)
  Receive Date: 20070803
  Receipt Date: 20070718
  Transmission Date: 20080115
  Serious: Yes (Hospitalization)
  Sender: FDA-Public Use
  Company Number: 6036098

PATIENT
  Sex: Male

DRUGS (2)
  1. PIROXICAM [Suspect]
     Indication: DRUG USE FOR UNKNOWN INDICATION
  2. NIMESULIDE (NIMESULIDE) [Suspect]
     Indication: DRUG USE FOR UNKNOWN INDICATION

REACTIONS (3)
  - DECREASED APPETITE [None]
  - DYSPEPSIA [None]
  - WEIGHT DECREASED [None]
